FAERS Safety Report 10649317 (Version 6)
Quarter: 2014Q4

REPORT INFORMATION
  Report Type: Spontaneous
  Country: US (occurrence: None)
  Receive Date: 20141210
  Receipt Date: 20141210
  Transmission Date: 20150529
  Serious: Yes (Hospitalization, Other)
  Sender: FDA-Public Use
  Company Number: UNT-2014-003813

PATIENT
  Age: 43 Year
  Sex: Male
  Weight: 77.1 kg

DRUGS (3)
  1. REMODULIN [Suspect]
     Active Substance: TREPROSTINIL
     Indication: PULMONARY ARTERIAL HYPERTENSION
     Route: 041
     Dates: start: 20120518
  2. ADCIRCA [Concomitant]
     Active Substance: TADALAFIL
  3. LETAIRIS [Concomitant]
     Active Substance: AMBRISENTAN

REACTIONS (9)
  - Arthralgia [None]
  - Diarrhoea [None]
  - Bone pain [None]
  - Injection site discharge [None]
  - Drug dose omission [None]
  - Staphylococcus test positive [None]
  - Pain in jaw [None]
  - Device leakage [None]
  - Headache [None]

NARRATIVE: CASE EVENT DATE: 2014
